FAERS Safety Report 25545866 (Version 1)
Quarter: 2025Q3

REPORT INFORMATION
  Report Type: Spontaneous
  Country: US (occurrence: US)
  Receive Date: 20250712
  Receipt Date: 20250712
  Transmission Date: 20251020
  Serious: Yes (Other)
  Sender: AUROBINDO
  Company Number: US-AUROBINDO-AUR-APL-2025-034998

PATIENT
  Age: 50 Year
  Sex: Female

DRUGS (2)
  1. CLOBETASOL PROPIONATE [Suspect]
     Active Substance: CLOBETASOL PROPIONATE
     Indication: Cutaneous T-cell lymphoma
  2. MECHLORETHAMINE [Concomitant]
     Active Substance: MECHLORETHAMINE
     Indication: Cutaneous T-cell lymphoma

REACTIONS (1)
  - Drug ineffective [Unknown]
